FAERS Safety Report 15670479 (Version 1)
Quarter: 2018Q4

REPORT INFORMATION
  Report Type: Spontaneous
  Country: US (occurrence: US)
  Receive Date: 20181121
  Receipt Date: 20181121
  Transmission Date: 20190205
  Serious: No
  Sender: FDA-Public Use
  Company Number: None

PATIENT
  Age: 29 Year
  Sex: Female

DRUGS (1)
  1. COPAXONE [Suspect]
     Active Substance: GLATIRAMER ACETATE
     Route: 058
     Dates: start: 201809

REACTIONS (4)
  - Urticaria [None]
  - Influenza like illness [None]
  - Pruritus [None]
  - Lymphadenopathy [None]

NARRATIVE: CASE EVENT DATE: 20181120
